FAERS Safety Report 8402521-3 (Version None)
Quarter: 2012Q2

REPORT INFORMATION
  Report Type: 
  Country: None (occurrence: None)
  Receive Date: 20120601
  Receipt Date: 20120529
  Transmission Date: 20120825
  Serious: Yes (Hospitalization)
  Sender: FDA-Public Use
  Company Number: PHEH2012US010993

PATIENT
  Sex: Male

DRUGS (2)
  1. PULMOZYME [Concomitant]
     Dosage: 2.5 ML, UNK
  2. TOBI [Suspect]
     Dosage: 300 MG, BID
     Dates: start: 20091001

REACTIONS (1)
  - LUNG DISORDER [None]
